FAERS Safety Report 5912845-7 (Version None)
Quarter: 2008Q4

REPORT INFORMATION
  Report Type: 
  Country: None (occurrence: None)
  Receive Date: 20081008
  Receipt Date: 20080925
  Transmission Date: 20090506
  Serious: Yes (Death, Hospitalization)
  Sender: FDA-Public Use
  Company Number: JP-GENENTECH-267445

PATIENT
  Sex: Male
  Weight: 70 kg

DRUGS (9)
  1. AVASTIN [Suspect]
     Indication: COLON CANCER METASTATIC
     Dosage: 5 MG/KG, Q2W
     Route: 041
     Dates: start: 20071221, end: 20080807
  2. OXALIPLATIN [Suspect]
     Indication: COLON CANCER METASTATIC
     Dosage: 5 MG/KG, Q2W
     Route: 041
     Dates: start: 20070927, end: 20080807
  3. FLUOROURACIL [Suspect]
     Indication: COLON CANCER METASTATIC
     Dosage: 680 MG, Q2W
     Route: 042
     Dates: start: 20070927, end: 20080807
  4. LEUCOVORIN CALCIUM [Suspect]
     Indication: COLON CANCER METASTATIC
     Dosage: 340 MG, Q2W
     Route: 041
     Dates: start: 20070927, end: 20080807
  5. KYTRIL [Concomitant]
     Indication: DRUG USE FOR UNKNOWN INDICATION
     Dosage: UNK
     Dates: start: 20070927
  6. DEXAMETHASONE SODIUM PHOSPHATE [Concomitant]
     Indication: DRUG USE FOR UNKNOWN INDICATION
     Dosage: UNK
     Dates: start: 20070927
  7. MAGMITT [Concomitant]
     Indication: DRUG USE FOR UNKNOWN INDICATION
     Dosage: UNK
     Dates: start: 20070927
  8. HARNAL [Concomitant]
     Indication: DRUG USE FOR UNKNOWN INDICATION
     Dosage: UNK
     Dates: start: 20070927
  9. DOMPERIDONE [Concomitant]
     Indication: DRUG USE FOR UNKNOWN INDICATION
     Dosage: UNK
     Dates: start: 20070927

REACTIONS (4)
  - CARDIOVASCULAR INSUFFICIENCY [None]
  - HEPATIC FAILURE [None]
  - INTERSTITIAL LUNG DISEASE [None]
  - MULTI-ORGAN FAILURE [None]
